FAERS Safety Report 14198100 (Version 1)
Quarter: 2017Q4

REPORT INFORMATION
  Report Type: Spontaneous
  Country: US (occurrence: US)
  Receive Date: 20171116
  Receipt Date: 20171116
  Transmission Date: 20180321
  Serious: Yes (Other)
  Sender: FDA-Public Use
  Company Number: None

PATIENT
  Age: 78 Year
  Sex: Male
  Weight: 70.31 kg

DRUGS (16)
  1. ATENOLOL. [Concomitant]
     Active Substance: ATENOLOL
  2. LISINOPRIL. [Concomitant]
     Active Substance: LISINOPRIL
  3. GLIMEPIRIDE. [Concomitant]
     Active Substance: GLIMEPIRIDE
  4. VITAMIN B12 [Concomitant]
     Active Substance: CYANOCOBALAMIN
  5. HYDROCODONE-ACETAMINOPHEN [Concomitant]
     Active Substance: ACETAMINOPHEN\HYDROCODONE
  6. METFORMIN [Concomitant]
     Active Substance: METFORMIN HYDROCHLORIDE
  7. VITAMIN D [Concomitant]
     Active Substance: CHOLECALCIFEROL
  8. ESCITALOPRAM [Concomitant]
     Active Substance: ESCITALOPRAM OXALATE
  9. PREDNISONE. [Concomitant]
     Active Substance: PREDNISONE
  10. FISH OIL [Concomitant]
     Active Substance: FISH OIL
  11. ASPIRIN. [Concomitant]
     Active Substance: ASPIRIN
  12. SETRALINE HCL [Concomitant]
  13. COQ10 [Concomitant]
     Active Substance: UBIDECARENONE
  14. ZYTIGA [Suspect]
     Active Substance: ABIRATERONE ACETATE
     Indication: PROSTATE CANCER
     Dates: start: 20161209, end: 20171116
  15. LIPITOR [Concomitant]
     Active Substance: ATORVASTATIN CALCIUM
  16. MULTIVITAMINE [Concomitant]

REACTIONS (2)
  - Disease progression [None]
  - Prostate cancer [None]

NARRATIVE: CASE EVENT DATE: 20171116
